FAERS Safety Report 7592342-6 (Version None)
Quarter: 2011Q3

REPORT INFORMATION
  Report Type: 
  Country: None (occurrence: None)
  Receive Date: 20110706
  Receipt Date: 20110627
  Transmission Date: 20111222
  Serious: Yes (Other)
  Sender: FDA-Public Use
  Company Number: JP-B.I. PHARMACEUTICALS,INC./RIDGEFIELD-2011-BP-10064YA

PATIENT
  Sex: Male
  Weight: 62.7 kg

DRUGS (9)
  1. MICARDIS [Concomitant]
  2. HYDROCHLOROTHIAZIDE W/TELMISARTAN (HYDROCHLOROTHIAZIDE, TELMISARTAN) [Concomitant]
     Dates: start: 20100121
  3. DIGOXIN [Concomitant]
     Route: 048
  4. LIPITOR [Concomitant]
  5. SIGMART (NICORANDIL) [Concomitant]
     Route: 048
  6. TAMSULOSIN HYDROCHLORIDE [Suspect]
     Indication: BENIGN PROSTATIC HYPERPLASIA
     Route: 048
     Dates: end: 20101213
  7. WARFARIN SODIUM [Concomitant]
     Route: 048
  8. PROTECADIN (LAFUTIDINE) [Concomitant]
     Route: 048
  9. AZULOXA (EGUALEN SODIUM) [Concomitant]

REACTIONS (1)
  - INTERVERTEBRAL DISC PROTRUSION [None]
